FAERS Safety Report 20298976 (Version 2)
Quarter: 2022Q1

REPORT INFORMATION
  Report Type: Spontaneous
  Country: US (occurrence: US)
  Receive Date: 20220105
  Receipt Date: 20220125
  Transmission Date: 20220424
  Serious: Yes (Hospitalization)
  Sender: FDA-Public Use
  Company Number: US-Fresenius Medical Care Renal Therapies Group-FMC-2112-001904

PATIENT
  Age: 86 Year
  Sex: Male
  Weight: 69 kg

DRUGS (2)
  1. DELFLEX WITH DEXTROSE 1.5% LOW MAGNESIUM LOW CALCIUM [Suspect]
     Active Substance: CALCIUM CHLORIDE\DEXTROSE\MAGNESIUM CHLORIDE\SODIUM CHLORIDE\SODIUM LACTATE
     Indication: End stage renal disease
     Dosage: 5 EXCHANGES OF 2,100ML WITH A DWELL OF 1 HOUR AND 29 MINUTES. THE PATIENT HAS A LAST FILL OF 250ML A
     Route: 033
  2. DELFLEX WITH DEXTROSE 2.5% LOW MAGNESIUM LOW CALCIUM [Suspect]
     Active Substance: CALCIUM CHLORIDE\DEXTROSE\MAGNESIUM CHLORIDE\SODIUM CHLORIDE\SODIUM LACTATE
     Indication: End stage renal disease
     Dosage: 5 EXCHANGES OF 2,100ML WITH A DWELL OF 1 HOUR AND 29 MINUTES. THE PATIENT HAS A LAST FILL OF 250ML A
     Route: 033

REACTIONS (1)
  - Pneumonia [Unknown]
